FAERS Safety Report 7616946 (Version 2)
Quarter: 2012Q4

REPORT INFORMATION
  Report Type: 
  Country: FR (occurrence: FR)
  Receive Date: 20101005
  Receipt Date: 20120830
  Transmission Date: 20130627
  Serious: Yes (Death)
  Sender: FDA-Public Use
  Company Number: FR-ACTELION-A-CH2010-40029

PATIENT
  Age: 2 Year
  Sex: Male
  Weight: 15 kg

DRUGS (1)
  1. ZAVESCA [Suspect]
     Indication: NIEMANN-PICK DISEASE
     Dosage: 50 mg, bid
     Route: 048
     Dates: start: 20090824, end: 20100815

REACTIONS (9)
  - Interstitial lung disease [Fatal]
  - Asphyxia [Fatal]
  - Hypoxia [Fatal]
  - Condition aggravated [Fatal]
  - Mechanical ventilation [Fatal]
  - Respiratory failure [Fatal]
  - Alveolar proteinosis [Fatal]
  - Niemann-Pick disease [Unknown]
  - Disease progression [Unknown]
